FAERS Safety Report 4639606-3 (Version None)
Quarter: 2005Q3

REPORT INFORMATION
  Report Type: 
  Country: None (occurrence: None)
  Receive Date: 20050413
  Receipt Date: 20050324
  Transmission Date: 20060218
  Serious: Yes (Other)
  Sender: FDA-Public Use
  Company Number: 200511048BBE

PATIENT
  Sex: Female

DRUGS (2)
  1. GAMUNEX [Suspect]
     Dosage: INTRAVENOUS
     Route: 042
  2. GAMUNEX [Suspect]

REACTIONS (2)
  - HAEMOLYSIS [None]
  - TYPE III IMMUNE COMPLEX MEDIATED REACTION [None]
